FAERS Safety Report 16313834 (Version 2)
Quarter: 2019Q3

REPORT INFORMATION
  Report Type: Spontaneous
  Country: US (occurrence: US)
  Receive Date: 20190515
  Receipt Date: 20190705
  Transmission Date: 20191004
  Serious: No
  Sender: FDA-Public Use
  Company Number: US-PFIZER INC-2019200218

PATIENT
  Age: 82 Year
  Sex: Male
  Weight: 63.4 kg

DRUGS (1)
  1. TYGACIL [Suspect]
     Active Substance: TIGECYCLINE
     Indication: ATYPICAL MYCOBACTERIAL INFECTION
     Dosage: 50 MG, TWICE DAILY (EVERY 12 HOURS)
     Route: 042
     Dates: start: 201901, end: 20190115

REACTIONS (4)
  - Vomiting [Recovered/Resolved]
  - Nausea [Recovered/Resolved]
  - Fatigue [Recovered/Resolved]
  - Decreased appetite [Recovered/Resolved]

NARRATIVE: CASE EVENT DATE: 201901
